FAERS Safety Report 10050594 (Version 1)
Quarter: 2014Q2

REPORT INFORMATION
  Report Type: Spontaneous
  Country: US (occurrence: US)
  Receive Date: 20140401
  Receipt Date: 20140401
  Transmission Date: 20141212
  Serious: No
  Sender: FDA-Public Use
  Company Number: US-ASTRAZENECA-2013SE51462

PATIENT
  Age: 65 Year
  Sex: Female
  Weight: 95.3 kg

DRUGS (10)
  1. NEXIUM [Suspect]
     Indication: GASTROOESOPHAGEAL REFLUX DISEASE
     Route: 048
     Dates: start: 1999
  2. PRILOSEC [Suspect]
     Indication: GASTROOESOPHAGEAL REFLUX DISEASE
     Route: 048
     Dates: start: 1995, end: 1999
  3. NEURONTIN [Concomitant]
     Indication: NEUROPATHY PERIPHERAL
     Route: 048
  4. ZOLOFT [Concomitant]
     Indication: DEPRESSION
     Route: 048
  5. LORTAB [Concomitant]
     Indication: PAIN
     Route: 048
  6. RESPERDAL [Concomitant]
     Indication: RESTLESS LEGS SYNDROME
     Dosage: 1 TABLET HS
     Route: 048
  7. NABUMETONE [Concomitant]
     Indication: PAIN
     Route: 048
  8. NABUMETONE [Concomitant]
     Indication: INFLAMMATION
     Route: 048
  9. CLARITIN [Concomitant]
     Indication: SINUS DISORDER
     Dosage: 1 TABLET PRN
     Route: 048
  10. OTC VITAMIN [Concomitant]
     Dosage: 1 TABLET DAILY
     Route: 048

REACTIONS (5)
  - Arthritis [Unknown]
  - Restless legs syndrome [Unknown]
  - Intervertebral disc protrusion [Unknown]
  - Sciatica [Unknown]
  - Drug ineffective [Unknown]
